FAERS Safety Report 5377718-X (Version None)
Quarter: 2007Q3

REPORT INFORMATION
  Report Type: 
  Country: None (occurrence: None)
  Receive Date: 20070703
  Receipt Date: 20070628
  Transmission Date: 20080115
  Serious: Yes (Hospitalization)
  Sender: FDA-Public Use
  Company Number: DE-BOEHRINGER INGELHEIM PHARMACEUTICALS, INC.-2007-DE-03805DE

PATIENT
  Sex: Female

DRUGS (1)
  1. SIFROL [Suspect]
     Indication: PARKINSONISM

REACTIONS (1)
  - ADVERSE DRUG REACTION [None]
